FAERS Safety Report 20417433 (Version 1)
Quarter: 2022Q1

REPORT INFORMATION
  Report Type: Spontaneous
  Country: US (occurrence: US)
  Receive Date: 20220202
  Receipt Date: 20220202
  Transmission Date: 20220424
  Serious: No
  Sender: FDA-Public Use
  Company Number: US-ELI_LILLY_AND_COMPANY-US202202001046

PATIENT
  Sex: Female

DRUGS (1)
  1. TRULICITY [Suspect]
     Active Substance: DULAGLUTIDE
     Indication: Diabetes mellitus
     Dosage: UNK MG, WEEKLY (1/W)
     Route: 058

REACTIONS (6)
  - Expired product administered [Unknown]
  - Dizziness [Unknown]
  - Anxiety [Unknown]
  - Nasopharyngitis [Unknown]
  - Pharyngeal swelling [Unknown]
  - Malaise [Unknown]
